FAERS Safety Report 19849824 (Version 2)
Quarter: 2021Q4

REPORT INFORMATION
  Report Type: Spontaneous
  Country: DE (occurrence: DE)
  Receive Date: 20210918
  Receipt Date: 20211025
  Transmission Date: 20220304
  Serious: Yes (Hospitalization)
  Sender: FDA-Public Use
  Company Number: None

PATIENT
  Age: 63 Year
  Sex: Female

DRUGS (14)
  1. CARBOPLATIN [Suspect]
     Active Substance: CARBOPLATIN
     Indication: Ovarian cancer
     Dates: start: 20210309, end: 20210309
  2. ASTRAZENECA COVID-19 VACCINE [Suspect]
     Active Substance: AZD-1222
     Indication: COVID-19 prophylaxis
     Route: 030
     Dates: start: 20210308, end: 20210308
  3. OLAPARIB [Suspect]
     Active Substance: OLAPARIB
     Indication: Ovarian cancer
     Route: 048
  4. DURVALUMAB [Suspect]
     Active Substance: DURVALUMAB
     Indication: Ovarian cancer
     Route: 042
     Dates: start: 20210330, end: 20210330
  5. APREPITANT [Concomitant]
     Active Substance: APREPITANT
     Indication: Chemotherapy side effect prophylaxis
     Route: 048
     Dates: start: 20210309
  6. GRANISETRON [Concomitant]
     Active Substance: GRANISETRON
     Indication: Chemotherapy side effect prophylaxis
     Route: 042
     Dates: start: 20210309
  7. EFEROX [Concomitant]
     Active Substance: LEVOTHYROXINE SODIUM
     Indication: Thyroid operation
     Route: 048
     Dates: start: 19940101
  8. DEXAMETHASONE [Concomitant]
     Active Substance: DEXAMETHASONE
     Indication: Chemotherapy side effect prophylaxis
     Route: 042
     Dates: start: 20210309
  9. BEVACIZUMAB [Concomitant]
     Active Substance: BEVACIZUMAB
     Indication: Ovarian cancer
     Dates: start: 20210330, end: 20210330
  10. DIMETHINDENE MALEATE [Concomitant]
     Active Substance: DIMETHINDENE MALEATE
     Indication: Chemotherapy side effect prophylaxis
     Route: 042
     Dates: start: 20210309
  11. FAMOTIDINE [Concomitant]
     Active Substance: FAMOTIDINE
     Indication: Chemotherapy side effect prophylaxis
     Route: 048
     Dates: start: 20210309
  12. PACLITAXEL [Concomitant]
     Active Substance: PACLITAXEL
     Indication: Ovarian cancer
     Dates: start: 20210331, end: 20210331
  13. DIMETHINDENE [Concomitant]
     Active Substance: DIMETHINDENE
     Indication: Hypersensitivity
     Route: 042
     Dates: start: 20210331, end: 20210331
  14. MOVICOL-LAXANS [Concomitant]
     Indication: Constipation
     Route: 048
     Dates: start: 20210321

REACTIONS (6)
  - General physical health deterioration [Recovered/Resolved]
  - Vaccination complication [Recovered/Resolved]
  - Dizziness [Recovered/Resolved]
  - Arthralgia [Recovered/Resolved]
  - Blood calcium decreased [Recovered/Resolved]
  - Constipation [Recovered/Resolved]

NARRATIVE: CASE EVENT DATE: 20210312
